FAERS Safety Report 4987607-8 (Version None)
Quarter: 2006Q2

REPORT INFORMATION
  Report Type: 
  Country: None (occurrence: None)
  Receive Date: 20060424
  Receipt Date: 20060413
  Transmission Date: 20061013
  Serious: Yes (Hospitalization, Other)
  Sender: FDA-Public Use
  Company Number: US200604002386

PATIENT
  Age: 54 Year
  Sex: Female

DRUGS (1)
  1. ZYPREXA [Suspect]
     Indication: BIPOLAR DISORDER
     Dosage: ORAL
     Route: 048
     Dates: start: 19990101, end: 20010101

REACTIONS (10)
  - ANURIA [None]
  - BLINDNESS [None]
  - FEELING ABNORMAL [None]
  - FLIGHT OF IDEAS [None]
  - HYPERTENSION [None]
  - MENOPAUSE [None]
  - RENAL FAILURE [None]
  - SWELLING [None]
  - VISUAL DISTURBANCE [None]
  - WEIGHT INCREASED [None]
